FAERS Safety Report 25878385 (Version 1)
Quarter: 2025Q4

REPORT INFORMATION
  Report Type: Spontaneous
  Country: EU (occurrence: EU)
  Receive Date: 20251003
  Receipt Date: 20251003
  Transmission Date: 20260118
  Serious: Yes (Life-Threatening, Hospitalization, Other)
  Sender: JOHNSON AND JOHNSON
  Company Number: None

PATIENT
  Age: 70 Year
  Sex: Male
  Weight: 73 kg

DRUGS (1)
  1. RYBREVANT [Suspect]
     Active Substance: AMIVANTAMAB-VMJW
     Indication: Bronchial carcinoma
     Dosage: ADMINISTRATION PROTOCOL: PEMETREXED 960MG + CARBOPLATINA 450 + RYBREVANT 350MG PLANNED ADMINISTRATIO
     Route: 042
     Dates: start: 20250925, end: 20250925

REACTIONS (2)
  - Anaphylactic reaction [Recovering/Resolving]
  - Bradycardia [Recovering/Resolving]

NARRATIVE: CASE EVENT DATE: 20250925
